FAERS Safety Report 23771684 (Version 2)
Quarter: 2024Q2

REPORT INFORMATION
  Report Type: Spontaneous
  Country: US (occurrence: US)
  Receive Date: 20240423
  Receipt Date: 20240423
  Transmission Date: 20240716
  Serious: No
  Sender: FDA-Public Use
  Company Number: US-002147023-NVSC2024US084791

PATIENT

DRUGS (2)
  1. COSENTYX [Suspect]
     Active Substance: SECUKINUMAB
     Indication: Product used for unknown indication
     Dosage: UNK
     Route: 065
  2. TALTZ [Concomitant]
     Active Substance: IXEKIZUMAB
     Indication: Product used for unknown indication
     Dosage: UNK (3 YEARS)
     Route: 065

REACTIONS (6)
  - Pruritus [Unknown]
  - Pain [Unknown]
  - Condition aggravated [Unknown]
  - Skin exfoliation [Unknown]
  - Skin disorder [Unknown]
  - Drug ineffective [Unknown]
